FAERS Safety Report 6506132-6 (Version None)
Quarter: 2009Q4

REPORT INFORMATION
  Report Type: 
  Country: None (occurrence: None)
  Receive Date: 20091218
  Receipt Date: 20091208
  Transmission Date: 20100525
  Serious: Yes (Hospitalization)
  Sender: FDA-Public Use
  Company Number: JP-ELI_LILLY_AND_COMPANY-JP200912003537

PATIENT
  Sex: Male
  Weight: 53 kg

DRUGS (8)
  1. GEMCITABINE HCL [Suspect]
     Indication: PANCREATIC CARCINOMA NON-RESECTABLE
     Dosage: 1528 MG, OTHER
     Route: 042
     Dates: start: 20091113
  2. BLINDED THERAPY [Suspect]
     Indication: PANCREATIC CARCINOMA NON-RESECTABLE
     Dosage: 1 ML, OTHER
     Route: 058
     Dates: start: 20091113
  3. LOXONIN [Concomitant]
     Indication: CANCER PAIN
     Route: 048
     Dates: start: 20091102
  4. METFORMIN HCL [Concomitant]
     Indication: DIABETES MELLITUS
     Dosage: 250 MG, 2/D
     Route: 048
     Dates: start: 20091108
  5. AMARYL [Concomitant]
     Indication: DIABETES MELLITUS
     Dosage: 1 MG, 2/D
     Route: 048
     Dates: start: 20091102, end: 20091204
  6. PURSENNID /00142207/ [Concomitant]
     Indication: CONSTIPATION
     Dosage: 12 MG, AS NEEDED
     Route: 048
     Dates: start: 20091109
  7. MAGMITT [Concomitant]
     Indication: CONSTIPATION
     Dosage: 1500 MG, AS NEEDED
     Route: 048
     Dates: start: 20091109
  8. MUCOSTA [Concomitant]
     Indication: PROPHYLAXIS
     Dosage: 100 MG, 3/D
     Route: 048
     Dates: start: 20091109

REACTIONS (1)
  - DIABETES MELLITUS [None]
